FAERS Safety Report 20086136 (Version 1)
Quarter: 2021Q4

REPORT INFORMATION
  Report Type: Spontaneous
  Country: US (occurrence: US)
  Receive Date: 20211118
  Receipt Date: 20211118
  Transmission Date: 20220303
  Serious: No
  Sender: FDA-Public Use
  Company Number: US-GLAXOSMITHKLINE-US2021AMR233470

PATIENT
  Sex: Female

DRUGS (5)
  1. VALTREX [Suspect]
     Active Substance: VALACYCLOVIR HYDROCHLORIDE
     Indication: Product used for unknown indication
     Dosage: UNK
  2. GABAPENTIN [Suspect]
     Active Substance: GABAPENTIN
     Indication: Product used for unknown indication
     Dosage: 100MG AT BEDTIME
  3. TYLENOL [Suspect]
     Active Substance: ACETAMINOPHEN
     Indication: Product used for unknown indication
     Dosage: 1000MG EVERY 6 HOURS
  4. TYLENOL [Suspect]
     Active Substance: ACETAMINOPHEN
     Dosage: 500MG EVERY 4 HOURS
  5. LIDOCAINE [Suspect]
     Active Substance: LIDOCAINE
     Indication: Herpes zoster
     Dosage: UNK

REACTIONS (2)
  - Paraesthesia [Unknown]
  - Drug ineffective [Unknown]
